FAERS Safety Report 6214687-4 (Version None)
Quarter: 2009Q2

REPORT INFORMATION
  Report Type: 
  Country: None (occurrence: None)
  Receive Date: 20090602
  Receipt Date: 20090519
  Transmission Date: 20091009
  Serious: Yes (Death)
  Sender: FDA-Public Use
  Company Number: 2009001526

PATIENT
  Age: 69 Year
  Sex: Female

DRUGS (2)
  1. ERLOTINIB (ERLOTINIB) (TABLET) (ERLOTINIB) [Suspect]
     Dosage: (150 MG, QD), ORAL
     Route: 048
     Dates: start: 20090508, end: 20090513
  2. CAPECITABINE [Suspect]
     Dosage: (2000 MG, BID), ORAL
     Route: 048
     Dates: start: 20090508, end: 20090513

REACTIONS (20)
  - BLOOD CHLORIDE DECREASED [None]
  - BLOOD PHOSPHORUS DECREASED [None]
  - BLOOD PRESSURE SYSTOLIC INCREASED [None]
  - BLOOD SODIUM DECREASED [None]
  - CARDIAC ARREST [None]
  - CHEST DISCOMFORT [None]
  - COMA [None]
  - CONJUNCTIVAL OEDEMA [None]
  - CYANOSIS [None]
  - ELECTROCARDIOGRAM ST SEGMENT ELEVATION [None]
  - EPIDERMOLYSIS [None]
  - GAMMA-GLUTAMYLTRANSFERASE INCREASED [None]
  - HYPOPNOEA [None]
  - HYPOXIC ENCEPHALOPATHY [None]
  - INCREASED UPPER AIRWAY SECRETION [None]
  - LETHARGY [None]
  - MYDRIASIS [None]
  - PCO2 INCREASED [None]
  - RESPIRATORY FAILURE [None]
  - SINUS TACHYCARDIA [None]
